FAERS Safety Report 19774996 (Version 1)
Quarter: 2021Q3

REPORT INFORMATION
  Report Type: Spontaneous
  Country: AU (occurrence: AU)
  Receive Date: 20210901
  Receipt Date: 20210901
  Transmission Date: 20211014
  Serious: Yes (Death, Hospitalization)
  Sender: FDA-Public Use
  Company Number: AU-MYLANLABS-2021M1057861

PATIENT
  Age: 23 Year
  Sex: Male

DRUGS (24)
  1. DIAZEPAM. [Suspect]
     Active Substance: DIAZEPAM
     Indication: AGITATION
     Dosage: UNK
     Route: 042
  2. DIAZEPAM. [Suspect]
     Active Substance: DIAZEPAM
     Indication: SYMPTOMATIC TREATMENT
  3. EPINEPHRINE. [Suspect]
     Active Substance: EPINEPHRINE
     Indication: TOXICITY TO VARIOUS AGENTS
  4. ROCURONIUM [Concomitant]
     Active Substance: ROCURONIUM BROMIDE
     Indication: ENDOTRACHEAL INTUBATION
     Route: 065
  5. CALCIUM GLUCONATE. [Suspect]
     Active Substance: CALCIUM GLUCONATE
     Indication: SYMPTOMATIC TREATMENT
  6. SODIUM GLUCONATE. [Suspect]
     Active Substance: SODIUM GLUCONATE
     Indication: SYMPTOMATIC TREATMENT
  7. CALCIUM GLUCONATE. [Suspect]
     Active Substance: CALCIUM GLUCONATE
     Indication: TOXICITY TO VARIOUS AGENTS
     Route: 042
  8. TRENBOLONE [Suspect]
     Active Substance: TRENBOLONE
     Indication: MUSCLE BUILDING THERAPY
     Route: 065
  9. SALINE                             /00075401/ [Suspect]
     Active Substance: SODIUM CHLORIDE
     Indication: TOXICITY TO VARIOUS AGENTS
     Route: 042
  10. SALINE                             /00075401/ [Suspect]
     Active Substance: SODIUM CHLORIDE
     Indication: SYMPTOMATIC TREATMENT
  11. DEXTROSE. [Suspect]
     Active Substance: DEXTROSE
     Indication: TOXICITY TO VARIOUS AGENTS
     Route: 042
  12. DEXTROSE. [Suspect]
     Active Substance: DEXTROSE
     Indication: SYMPTOMATIC TREATMENT
  13. DIAZEPAM. [Suspect]
     Active Substance: DIAZEPAM
     Indication: TOXICITY TO VARIOUS AGENTS
  14. INSULIN GLARGINE [Suspect]
     Active Substance: INSULIN GLARGINE
     Indication: TOXICITY TO VARIOUS AGENTS
  15. METHANDROSTENOLONE [Suspect]
     Active Substance: METHANDROSTENOLONE
     Indication: MUSCLE BUILDING THERAPY
     Route: 065
  16. SODIUM BICARBONATE. [Suspect]
     Active Substance: SODIUM BICARBONATE
     Indication: SYMPTOMATIC TREATMENT
  17. ACTIVATED CHARCOAL. [Suspect]
     Active Substance: ACTIVATED CHARCOAL
     Indication: TOXICITY TO VARIOUS AGENTS
     Route: 065
  18. EPINEPHRINE. [Suspect]
     Active Substance: EPINEPHRINE
     Indication: SYMPTOMATIC TREATMENT
     Dosage: UNK
     Route: 042
  19. TADALAFIL. [Suspect]
     Active Substance: TADALAFIL
     Indication: MUSCLE BUILDING THERAPY
     Dosage: UNK
     Route: 065
  20. INSULIN GLARGINE [Suspect]
     Active Substance: INSULIN GLARGINE
     Indication: SYMPTOMATIC TREATMENT
     Dosage: UNK
     Route: 042
  21. SODIUM GLUCONATE. [Suspect]
     Active Substance: SODIUM GLUCONATE
     Indication: TOXICITY TO VARIOUS AGENTS
     Route: 065
  22. PROPOFOL. [Concomitant]
     Active Substance: PROPOFOL
     Indication: ENDOTRACHEAL INTUBATION
     Route: 065
  23. SODIUM BICARBONATE. [Suspect]
     Active Substance: SODIUM BICARBONATE
     Indication: TOXICITY TO VARIOUS AGENTS
     Route: 065
  24. MIDAZOLAM. [Concomitant]
     Active Substance: MIDAZOLAM
     Indication: ENDOTRACHEAL INTUBATION
     Route: 065

REACTIONS (2)
  - Drug ineffective [Fatal]
  - Drug abuse [Unknown]
